FAERS Safety Report 5533515-3 (Version None)
Quarter: 2007Q4

REPORT INFORMATION
  Report Type: 
  Country: None (occurrence: None)
  Receive Date: 20071204
  Receipt Date: 20071127
  Transmission Date: 20080405
  Serious: Yes (Death, Hospitalization)
  Sender: FDA-Public Use
  Company Number: ES-ELI_LILLY_AND_COMPANY-ES200711006163

PATIENT
  Age: 45 Year
  Sex: Female

DRUGS (3)
  1. FORTEO [Suspect]
     Indication: OSTEOPOROSIS
     Dosage: 20 UG, UNKNOWN
     Route: 058
     Dates: start: 20071114
  2. METOCLOPRAMIDE HCL [Concomitant]
     Indication: VOMITING
     Dosage: UNK, UNKNOWN
  3. ANALGESICS [Concomitant]
     Indication: PAIN
     Dosage: UNK, UNKNOWN

REACTIONS (4)
  - ABDOMINAL PAIN UPPER [None]
  - CARDIO-RESPIRATORY ARREST [None]
  - LIVER DISORDER [None]
  - VOMITING [None]
